FAERS Safety Report 7914908-3 (Version None)
Quarter: 2011Q4

REPORT INFORMATION
  Report Type: 
  Country: None (occurrence: None)
  Receive Date: 20111115
  Receipt Date: 20111114
  Transmission Date: 20120403
  Serious: No
  Sender: FDA-Public Use
  Company Number: US-PFIZER INC-2011278225

PATIENT
  Sex: Female
  Weight: 48.9 kg

DRUGS (1)
  1. IBUPROFEN (ADVIL) [Suspect]
     Indication: ARTHRITIS
     Dosage: UNK, 3X/DAY
     Route: 048
     Dates: start: 20111001, end: 20111114

REACTIONS (1)
  - EPISTAXIS [None]
